FAERS Safety Report 5930157-2 (Version None)
Quarter: 2008Q4

REPORT INFORMATION
  Report Type: 
  Country: None (occurrence: None)
  Receive Date: 20081009
  Receipt Date: 20080212
  Transmission Date: 20090506
  Serious: Yes (Hospitalization)
  Sender: FDA-Public Use
  Company Number: PHEH2008US01820

PATIENT
  Age: 76 Year
  Sex: Male

DRUGS (2)
  1. ZOMETA [Suspect]
     Indication: METASTASES TO BONE
     Dosage: 4 MG, Q3MO, INTRAVENOUS
     Route: 042
     Dates: start: 20071220
  2. ZOLADEX [Concomitant]

REACTIONS (1)
  - BONE PAIN [None]
